FAERS Safety Report 5794429-7 (Version None)
Quarter: 2008Q2

REPORT INFORMATION
  Report Type: 
  Country: None (occurrence: None)
  Receive Date: 20080630
  Receipt Date: 20080624
  Transmission Date: 20081010
  Serious: Yes (Disabling, Other)
  Sender: FDA-Public Use
  Company Number: GB-RANBAXY-2008RR-16083

PATIENT

DRUGS (12)
  1. ACYCLOVIR [Suspect]
     Dosage: 400 MG, TID
     Dates: start: 20080609, end: 20080611
  2. ACYCLOVIR [Suspect]
     Dosage: 400 MG, BID
  3. ALFACALCIDOL [Concomitant]
  4. CLOPIDOGREL HYDROGEN SULPAHTE [Concomitant]
  5. CREON [Concomitant]
  6. DARBEPOETIN ALFA [Concomitant]
  7. MIXTARD HUMAN 70/30 [Concomitant]
  8. OMEPRAZOLE [Concomitant]
  9. ACETAMINOPHEN [Concomitant]
  10. SIMVASTATIN [Concomitant]
  11. TACROLIMUS [Concomitant]
  12. THIAMINE [Concomitant]

REACTIONS (2)
  - CONFUSIONAL STATE [None]
  - NEUROTOXICITY [None]
